FAERS Safety Report 9095477 (Version 1)
Quarter: 2013Q1

REPORT INFORMATION
  Report Type: Spontaneous
  Country: IR (occurrence: IR)
  Receive Date: 20130219
  Receipt Date: 20130219
  Transmission Date: 20140127
  Serious: Yes (Hospitalization)
  Sender: FDA-Public Use
  Company Number: PHHY2013IR014488

PATIENT
  Age: 34 Year
  Sex: Female

DRUGS (2)
  1. METHYLPREDNISOLONE [Suspect]
     Indication: PANCREAS TRANSPLANT REJECTION
     Dosage: 1000 MG, ONE PULSE
  2. INSULIN [Concomitant]

REACTIONS (6)
  - Diabetic ketoacidosis [Recovered/Resolved]
  - Metabolic acidosis [Recovered/Resolved]
  - Respiratory alkalosis [Recovered/Resolved]
  - Vomiting [Recovered/Resolved]
  - Abdominal pain [Recovered/Resolved]
  - Muscular weakness [Recovered/Resolved]
